FAERS Safety Report 6763395-X (Version None)
Quarter: 2010Q2

REPORT INFORMATION
  Report Type: 
  Country: None (occurrence: None)
  Receive Date: 20100610
  Receipt Date: 20100607
  Transmission Date: 20101027
  Serious: Yes (Hospitalization)
  Sender: FDA-Public Use
  Company Number: JP-BAYER-200912596BYL

PATIENT
  Age: 52 Year
  Sex: Female
  Weight: 54 kg

DRUGS (16)
  1. NEXAVAR [Suspect]
     Indication: RENAL CELL CARCINOMA
     Dosage: UNIT DOSE: 200 MG
     Route: 048
     Dates: start: 20090904, end: 20091030
  2. NEXAVAR [Suspect]
     Dosage: UNIT DOSE: 200 MG
     Route: 048
     Dates: start: 20090815, end: 20090903
  3. NEXAVAR [Suspect]
     Dosage: TOTAL DAILY DOSE: 600 MG  UNIT DOSE: 200 MG
     Route: 048
     Dates: start: 20090615, end: 20090724
  4. NEXAVAR [Suspect]
     Dosage: UNIT DOSE: 200 MG
     Route: 048
     Dates: start: 20090525
  5. NEXAVAR [Suspect]
     Dosage: UNIT DOSE: 200 MG
     Route: 048
     Dates: start: 20091201
  6. MUCODYNE [Concomitant]
     Route: 048
     Dates: start: 20090615
  7. CODEINE SULFATE [Concomitant]
     Route: 048
     Dates: start: 20090525
  8. CODEINE SULFATE [Concomitant]
     Route: 048
     Dates: start: 20090615
  9. GENINAX [Concomitant]
     Route: 048
     Dates: start: 20091030, end: 20091130
  10. GENINAX [Concomitant]
     Route: 048
     Dates: start: 20090724, end: 20090729
  11. TAKEPRON [Concomitant]
     Indication: PROPHYLAXIS
     Dosage: UNIT DOSE: 15 MG
     Route: 048
     Dates: start: 20090724
  12. COTRIM [Concomitant]
     Indication: PROPHYLAXIS
     Dosage: TOTAL DAILY DOSE: 1 DF
     Route: 048
     Dates: start: 20090731, end: 20091001
  13. GLUFAST [Concomitant]
     Route: 048
     Dates: start: 20090724
  14. BONALON 35MG [Concomitant]
     Route: 048
     Dates: start: 20091117
  15. MICONAZOLE NITRATE [Concomitant]
     Route: 048
     Dates: start: 20091121, end: 20091128
  16. DEPAS [Concomitant]
     Route: 048
     Dates: start: 20091201

REACTIONS (6)
  - DIARRHOEA [None]
  - HYPERTENSION [None]
  - HYPOTHYROIDISM [None]
  - PALMAR-PLANTAR ERYTHRODYSAESTHESIA SYNDROME [None]
  - RADIATION PNEUMONITIS [None]
  - RASH [None]
